FAERS Safety Report 25716311 (Version 1)
Quarter: 2025Q3

REPORT INFORMATION
  Report Type: Spontaneous
  Country: US (occurrence: US)
  Receive Date: 20250822
  Receipt Date: 20250822
  Transmission Date: 20251021
  Serious: Yes (Other)
  Sender: NOVO NORDISK
  Company Number: US-NOVOPROD-1503122

PATIENT
  Sex: Female

DRUGS (1)
  1. TRESIBA [Suspect]
     Active Substance: INSULIN DEGLUDEC
     Indication: Type 2 diabetes mellitus
     Dosage: 33 IU, QD
     Route: 058
     Dates: start: 202506

REACTIONS (5)
  - Visual impairment [Recovering/Resolving]
  - Peripheral swelling [Unknown]
  - Product administration error [Unknown]
  - Product storage error [Unknown]
  - Product label confusion [Unknown]

NARRATIVE: CASE EVENT DATE: 20250601
